FAERS Safety Report 6900581-X (Version None)
Quarter: 2010Q3

REPORT INFORMATION
  Report Type: 
  Country: None (occurrence: None)
  Receive Date: 20100730
  Receipt Date: 20100716
  Transmission Date: 20110219
  Serious: Yes (Hospitalization)
  Sender: FDA-Public Use
  Company Number: CTI_01218_2010

PATIENT
  Age: 49 Year
  Sex: Male

DRUGS (2)
  1. MEIACT (MEIACT MS (CEFIDTOREN PIVOXIL)) [Suspect]
     Indication: PYREXIA
     Dosage: DF ORAL
     Route: 048
     Dates: start: 20100426, end: 20100430
  2. LOXOPROFEN SODIUM [Concomitant]

REACTIONS (8)
  - ABDOMINAL PAIN [None]
  - ALANINE AMINOTRANSFERASE INCREASED [None]
  - ASPARTATE AMINOTRANSFERASE INCREASED [None]
  - BLOOD BILIRUBIN INCREASED [None]
  - JAUNDICE [None]
  - OROPHARYNGEAL PAIN [None]
  - PRURITUS [None]
  - PYREXIA [None]
